FAERS Safety Report 14120159 (Version 2)
Quarter: 2018Q4

REPORT INFORMATION
  Report Type: Other
  Country: TR (occurrence: TR)
  Receive Date: 20171024
  Receipt Date: 20181017
  Transmission Date: 20190204
  Serious: Yes (Life-Threatening, Hospitalization)
  Sender: FDA-Public Use
  Company Number: TR-MERCK KGAA-2031265

PATIENT
  Age: 38 Year
  Sex: Female

DRUGS (5)
  1. CITALOPRAM HYDROBROMIDE. [Suspect]
     Active Substance: CITALOPRAM HYDROBROMIDE
  2. OLANZAPINE. [Suspect]
     Active Substance: OLANZAPINE
  3. CALCITRIOL. [Concomitant]
     Active Substance: CALCITRIOL
  4. EUTHYROX [Suspect]
     Active Substance: LEVOTHYROXINE SODIUM
     Indication: SUICIDE ATTEMPT
  5. CALCIUM [Concomitant]
     Active Substance: CALCIUM

REACTIONS (7)
  - Acute respiratory failure [Recovered/Resolved]
  - Coma scale abnormal [Recovered/Resolved]
  - Blood pressure increased [Recovered/Resolved]
  - Hyperthyroidism [Recovered/Resolved]
  - Suicide attempt [None]
  - Toxicity to various agents [Recovered/Resolved]
  - Intentional overdose [Recovered/Resolved]
